FAERS Safety Report 9790040 (Version 2)
Quarter: 2013Q4

REPORT INFORMATION
  Report Type: Spontaneous
  Country: IN (occurrence: IN)
  Receive Date: 20131231
  Receipt Date: 20131231
  Transmission Date: 20140711
  Serious: Yes (Other)
  Sender: FDA-Public Use
  Company Number: IN-RANBAXY-2013RR-76370

PATIENT
  Age: 46 Year
  Sex: Male

DRUGS (3)
  1. AMLODIPINE [Suspect]
     Indication: RENAL HYPERTENSION
     Dosage: 10 MG, QD
     Route: 065
  2. BIORAL [Suspect]
     Indication: RENAL TRANSPLANT
     Dosage: 50 MG, TID
     Route: 065
  3. PREDNISOLONE [Concomitant]
     Indication: PRODUCT USED FOR UNKNOWN INDICATION
     Dosage: 40 MG, BID
     Route: 065

REACTIONS (2)
  - Gingival hyperplasia [Recovered/Resolved]
  - Renal hypertension [Unknown]
